FAERS Safety Report 16811946 (Version 1)
Quarter: 2019Q3

REPORT INFORMATION
  Report Type: Report from Study
  Country: GB (occurrence: GB)
  Receive Date: 20190916
  Receipt Date: 20190916
  Transmission Date: 20191005
  Serious: Yes (Other)
  Sender: FDA-Public Use
  Company Number: PHHY2019GB208061

PATIENT
  Age: 35 Year
  Sex: Female

DRUGS (1)
  1. ERELZI [Suspect]
     Active Substance: ETANERCEPT-SZZS
     Indication: RHEUMATOID ARTHRITIS
     Dosage: 50 MG, QW (PREFILLED PEN)
     Route: 065

REACTIONS (12)
  - Night sweats [Unknown]
  - Abdominal pain [Unknown]
  - Weight decreased [Unknown]
  - Fatigue [Unknown]
  - Vomiting [Unknown]
  - Pain in extremity [Unknown]
  - Productive cough [Not Recovered/Not Resolved]
  - Nausea [Unknown]
  - Asthenia [Unknown]
  - Multiple sclerosis [Unknown]
  - Pelvic pain [Unknown]
  - Dyspnoea [Unknown]

NARRATIVE: CASE EVENT DATE: 201901
